FAERS Safety Report 19259717 (Version 2)
Quarter: 2021Q2

REPORT INFORMATION
  Report Type: Spontaneous
  Country: US (occurrence: US)
  Receive Date: 20210514
  Receipt Date: 20210525
  Transmission Date: 20210717
  Serious: No
  Sender: FDA-Public Use
  Company Number: US-FAGRON STERILE SERVICES-2110556

PATIENT
  Age: 23 Year
  Sex: Male
  Weight: 85 kg

DRUGS (1)
  1. ROCURONIUM BROMIDE INJ. 10MG/ML (API)5ML [Suspect]
     Active Substance: ROCURONIUM BROMIDE

REACTIONS (1)
  - Drug ineffective [None]
